FAERS Safety Report 6505872-2 (Version None)
Quarter: 2009Q4

REPORT INFORMATION
  Report Type: 
  Country: None (occurrence: None)
  Receive Date: 20091218
  Receipt Date: 20091215
  Transmission Date: 20100525
  Serious: Yes (Hospitalization)
  Sender: FDA-Public Use
  Company Number: FR-ROCHE-673215

PATIENT
  Sex: Female
  Weight: 50 kg

DRUGS (6)
  1. TRASTUZUMAB [Suspect]
     Indication: BREAST CANCER
     Dosage: DOSE LEVEL: 8 MG/KG.  LAST DOSE PRIOR TO SAE: 27 NOVEMBER 2009. FORM: VIALS.
     Route: 042
     Dates: start: 20091127
  2. DOCETAXEL [Suspect]
     Indication: BREAST CANCER
     Dosage: DOSE LEVEL: 100 MG/M2.  LAST DOSE PRIOR TO SAE: 26 NOVEMBER 2009. FORM: VIALS.
     Route: 042
     Dates: start: 20091126
  3. TAMIFLU [Concomitant]
     Dates: start: 20091129, end: 20091130
  4. PARIET [Concomitant]
     Dates: start: 20091129, end: 20091130
  5. TOPALGIC [Concomitant]
     Dates: start: 20091130, end: 20091130
  6. DOLIPRANE [Concomitant]
     Dates: start: 20091201, end: 20091202

REACTIONS (1)
  - FEBRILE NEUTROPENIA [None]
